FAERS Safety Report 26176117 (Version 1)
Quarter: 2025Q4

REPORT INFORMATION
  Report Type: Spontaneous
  Country: US (occurrence: US)
  Receive Date: 20251218
  Receipt Date: 20251218
  Transmission Date: 20260118
  Serious: Yes (Hospitalization)
  Sender: CRINETICS PHARMACEUTICALS
  Company Number: US-CRINETICS PHARMACEUTICALS, INC-2025US000053

PATIENT

DRUGS (16)
  1. PALSONIFY [Suspect]
     Active Substance: PALTUSOTINE HYDROCHLORIDE
     Indication: Acromegaly
     Dosage: 40 MILLIGRAM, QD (20 MG X 2)
     Route: 048
     Dates: start: 20251101, end: 20251125
  2. PALSONIFY [Suspect]
     Active Substance: PALTUSOTINE HYDROCHLORIDE
     Dosage: 40 MILLIGRAM, QD (20 MG X 2)
     Route: 048
     Dates: start: 20251207
  3. ALPRAZOLAM [Concomitant]
     Active Substance: ALPRAZOLAM
     Indication: Anxiety
     Dosage: 0.25 MILLIGRAM, (1/2 TABLET) PRN
     Route: 065
  4. OMEPRAZOLE [Concomitant]
     Active Substance: OMEPRAZOLE
     Indication: Gastrooesophageal reflux disease
     Dosage: 40 MILLIGRAM, QD
     Route: 065
  5. SKYRIZI [Concomitant]
     Active Substance: RISANKIZUMAB-RZAA
     Indication: Product used for unknown indication
     Dosage: UNK
     Route: 065
  6. TRIAMCINOLONE [Concomitant]
     Active Substance: TRIAMCINOLONE
     Indication: Psoriasis
     Dosage: UNK
     Route: 065
  7. VOLTAREN [Concomitant]
     Active Substance: DICLOFENAC SODIUM
     Indication: Product used for unknown indication
     Dosage: UNK
     Route: 065
  8. CLOBETASOL [Concomitant]
     Active Substance: CLOBETASOL
     Indication: Psoriasis
     Dosage: UNK
     Route: 065
  9. CLOBETASOL [Concomitant]
     Active Substance: CLOBETASOL
     Indication: Psoriasis
     Dosage: UNK
     Route: 065
  10. LEVOTHYROXINE [Concomitant]
     Active Substance: LEVOTHYROXINE
     Indication: Product used for unknown indication
     Dosage: UNK
     Route: 065
  11. CABERGOLINE [Concomitant]
     Active Substance: CABERGOLINE
     Indication: Acromegaly
     Dosage: UNK
     Route: 065
  12. CYCLOBENZAPRINE [Concomitant]
     Active Substance: CYCLOBENZAPRINE
     Indication: Muscle relaxant therapy
     Dosage: UNK
     Route: 065
  13. ALBUTEROL SULFATE [Concomitant]
     Active Substance: ALBUTEROL SULFATE
     Indication: Product used for unknown indication
     Dosage: UNK, PRN
  14. CHOLECALCIFEROL [Concomitant]
     Active Substance: CHOLECALCIFEROL
     Indication: Vitamin D decreased
     Dosage: UNK (PRESCRIPTION STRENGTH)
     Route: 065
  15. TYLENOL [Concomitant]
     Active Substance: ACETAMINOPHEN
     Indication: Pain
     Dosage: UNK, TID
     Route: 065
  16. NORTRIPTYLINE [Concomitant]
     Active Substance: NORTRIPTYLINE
     Indication: Migraine
     Dosage: UNK
     Route: 065

REACTIONS (11)
  - Compartment syndrome [Recovering/Resolving]
  - Somnolence [Recovering/Resolving]
  - Pain in extremity [Recovering/Resolving]
  - Vomiting projectile [Unknown]
  - Urticaria [Unknown]
  - Swelling face [Unknown]
  - Postoperative wound complication [Unknown]
  - Hyperhidrosis [Unknown]
  - Disorientation [Unknown]
  - Intentional dose omission [Recovered/Resolved]
  - Dysgraphia [Unknown]

NARRATIVE: CASE EVENT DATE: 20251124
